FAERS Safety Report 4277824-7 (Version None)
Quarter: 2004Q1

REPORT INFORMATION
  Report Type: 
  Country: None (occurrence: None)
  Receive Date: 20040121
  Receipt Date: 20040106
  Transmission Date: 20041129
  Serious: Yes (Death, Hospitalization)
  Sender: FDA-Public Use
  Company Number: A04200300759

PATIENT
  Sex: Male

DRUGS (1)
  1. UROXATRAL - SLOW RELEASE - (ALFUZOSIN HYDROCHLORIDE) - TABLET PR - 5 M [Suspect]
     Indication: BENIGN PROSTATIC HYPERPLASIA
     Dosage: ORAL
     Route: 048
     Dates: end: 20030101

REACTIONS (3)
  - ANGINA PECTORIS [None]
  - CARDIAC DISORDER [None]
  - DISEASE PROGRESSION [None]
